FAERS Safety Report 9230944 (Version 1)
Quarter: 2013Q2

REPORT INFORMATION
  Report Type: Spontaneous
  Country: GB (occurrence: GB)
  Receive Date: 20130415
  Receipt Date: 20130415
  Transmission Date: 20140414
  Serious: Yes (Other)
  Sender: FDA-Public Use
  Company Number: GB-009507513-1304GBR005611

PATIENT
  Age: 29 Year
  Sex: Male

DRUGS (4)
  1. EMEND [Suspect]
     Indication: PROPHYLAXIS OF NAUSEA AND VOMITING
     Dosage: UNK
     Route: 048
     Dates: start: 201304, end: 201304
  2. BLEOMYCIN (+) CISPLATIN (+) ETOPOSIDE [Concomitant]
     Dosage: 5 DAYS
  3. DEXAMETHASONE TABLETS BP  2.0MG [Concomitant]
     Dosage: 8 MG, UNK
  4. ONDANSETRON [Concomitant]
     Dosage: 8 MG, UNK

REACTIONS (2)
  - Restless legs syndrome [Recovered/Resolved]
  - Hiccups [Recovered/Resolved]
